FAERS Safety Report 24201946 (Version 1)
Quarter: 2024Q3

REPORT INFORMATION
  Report Type: Spontaneous
  Country: CN (occurrence: CN)
  Receive Date: 20240812
  Receipt Date: 20240812
  Transmission Date: 20241017
  Serious: Yes (Other)
  Sender: G1 THERAPEUTICS
  Company Number: CN-SIMCERE ZAIMING PHARMACEUTICAL CO., LTD.-2024XSYY3441

PATIENT

DRUGS (2)
  1. TRILACICLIB [Suspect]
     Active Substance: TRILACICLIB
     Indication: Small cell lung cancer
     Dosage: 420 MG, CYCLIC
     Route: 042
     Dates: start: 20240802, end: 20240802
  2. TRILACICLIB [Suspect]
     Active Substance: TRILACICLIB
     Indication: Myelosuppression

REACTIONS (2)
  - Dyspnoea [Unknown]
  - Cardiac failure [Unknown]

NARRATIVE: CASE EVENT DATE: 20240802
